FAERS Safety Report 9068357 (Version 1)
Quarter: 2013Q1

REPORT INFORMATION
  Report Type: Spontaneous
  Country: US (occurrence: None)
  Receive Date: 20130212
  Receipt Date: 20130212
  Transmission Date: 20140127
  Serious: Yes (Death)
  Sender: FDA-Public Use
  Company Number: None

PATIENT
  Age: 23 Year
  Sex: Female
  Weight: 81.65 kg

DRUGS (1)
  1. NUVARING [Suspect]
     Indication: CONTRACEPTION
     Dosage: 0.120MG/0.015 3 WEEKS ON, 1 OFF VAG
     Dates: start: 20100901, end: 20130101

REACTIONS (13)
  - Fatigue [None]
  - Anxiety [None]
  - Palpitations [None]
  - Acute respiratory failure [None]
  - Eye movement disorder [None]
  - Posture abnormal [None]
  - Ventricular fibrillation [None]
  - Ventricular tachycardia [None]
  - Pulmonary haemorrhage [None]
  - Hypoxia [None]
  - Deep vein thrombosis [None]
  - Embolism venous [None]
  - Brain injury [None]
